FAERS Safety Report 23437919 (Version 1)
Quarter: 2024Q1

REPORT INFORMATION
  Report Type: Spontaneous
  Country: FR (occurrence: FR)
  Receive Date: 20240124
  Receipt Date: 20240124
  Transmission Date: 20240410
  Serious: Yes (Hospitalization)
  Sender: FDA-Public Use
  Company Number: None

PATIENT
  Age: 57 Year
  Sex: Male

DRUGS (3)
  1. TRAMADOL [Suspect]
     Active Substance: TRAMADOL\TRAMADOL HYDROCHLORIDE
     Indication: Product used for unknown indication
     Dosage: 50 MILLIGRAM (5 CAPSULES MORNING AND EVENING)
     Route: 065
     Dates: end: 20230821
  2. METHADONE HYDROCHLORIDE [Suspect]
     Active Substance: METHADONE HYDROCHLORIDE
     Indication: Product used for unknown indication
     Dosage: 40 MILLIGRAM, BID (MORNING AND EVENING)
     Route: 048
     Dates: end: 20230821
  3. FENTANYL [Suspect]
     Active Substance: FENTANYL\FENTANYL CITRATE
     Indication: Product used for unknown indication
     Dosage: 1 DOSAGE FORM, Q2D (1 PATCH PER 48 HOURS)
     Route: 062
     Dates: start: 202201, end: 202309

REACTIONS (3)
  - Drug use disorder [Recovering/Resolving]
  - Drug abuse [Recovering/Resolving]
  - Drug dependence [Recovering/Resolving]
